FAERS Safety Report 9472250 (Version 1)
Quarter: 2013Q3

REPORT INFORMATION
  Report Type: Spontaneous
  Country: US (occurrence: None)
  Receive Date: 20130821
  Receipt Date: 20130821
  Transmission Date: 20140515
  Serious: No
  Sender: FDA-Public Use
  Company Number: None

PATIENT
  Sex: 0

DRUGS (1)
  1. HEPARIN SOD. SOLUTION 25,000 UNITS/500 ML HEPARIN SODIUM [Suspect]
     Dosage: INJECTABLE INJECTION 10,000 UNITS MULTI-DOSE VIAL 10 ML

REACTIONS (2)
  - Product label confusion [None]
  - Medication error [None]
